FAERS Safety Report 5343856-0 (Version None)
Quarter: 2007Q2

REPORT INFORMATION
  Report Type: 
  Country: None (occurrence: None)
  Receive Date: 20070531
  Receipt Date: 20070531
  Transmission Date: 20071010
  Serious: Yes (Hospitalization, Disabling)
  Sender: FDA-Public Use
  Company Number: None

PATIENT
  Age: 45 Year
  Sex: Female
  Weight: 133.8111 kg

DRUGS (1)
  1. TOPAMAX [Suspect]
     Indication: MIGRAINE PROPHYLAXIS
     Dosage: 25MG 7 DAYS 1 A DAY PO; 50MG DAYS THEN LOST SIGHT 2A DAY PO
     Route: 048
     Dates: start: 20060502, end: 20060512

REACTIONS (7)
  - BLINDNESS [None]
  - EYE PAIN [None]
  - IMPAIRED DRIVING ABILITY [None]
  - INTRAOCULAR PRESSURE INCREASED [None]
  - LOSS OF EMPLOYMENT [None]
  - MIGRAINE [None]
  - VISUAL ACUITY REDUCED [None]
